FAERS Safety Report 8392706-7 (Version None)
Quarter: 2012Q2

REPORT INFORMATION
  Report Type: 
  Country: None (occurrence: None)
  Receive Date: 20120529
  Receipt Date: 20120518
  Transmission Date: 20120825
  Serious: Yes (Other)
  Sender: FDA-Public Use
  Company Number: JP-ASTRAZENECA-2012SE32817

PATIENT

DRUGS (1)
  1. CRESTOR [Suspect]
     Dosage: DOSE UNKNOWN
     Route: 048

REACTIONS (2)
  - VASCULITIS NECROTISING [None]
  - PURPURA [None]
